FAERS Safety Report 15625580 (Version 2)
Quarter: 2018Q4

REPORT INFORMATION
  Report Type: Spontaneous
  Country: AU (occurrence: AU)
  Receive Date: 20181116
  Receipt Date: 20181122
  Transmission Date: 20190205
  Serious: Yes (Hospitalization, Other)
  Sender: FDA-Public Use
  Company Number: PHHY2018AU150313

PATIENT
  Age: 76 Year
  Sex: Female
  Weight: 64.5 kg

DRUGS (2)
  1. COSENTYX [Suspect]
     Active Substance: SECUKINUMAB
     Indication: PSORIASIS
     Dosage: 300 MG, Q4W
     Route: 058
     Dates: start: 20180420
  2. COSENTYX [Suspect]
     Active Substance: SECUKINUMAB
     Dosage: 150 MG, Q4W
     Route: 058

REACTIONS (14)
  - Diverticulitis [Recovered/Resolved]
  - Fall [Recovered/Resolved]
  - Staphylococcal sepsis [Recovered/Resolved]
  - Pneumonia staphylococcal [Recovered/Resolved]
  - Hepatic enzyme abnormal [Unknown]
  - Pneumonia [Recovered/Resolved]
  - Opportunistic infection [Unknown]
  - Staphylococcal infection [Recovered/Resolved]
  - Chronic obstructive pulmonary disease [Recovered/Resolved]
  - Fluid overload [Recovered/Resolved]
  - Lower respiratory tract infection [Recovered/Resolved]
  - Renal impairment [Unknown]
  - Cholestasis [Unknown]
  - Respiratory failure [Recovered/Resolved]

NARRATIVE: CASE EVENT DATE: 201806
